FAERS Safety Report 9505158 (Version 4)
Quarter: 2015Q4

REPORT INFORMATION
  Report Type: Report from Study
  Country: US (occurrence: US)
  Receive Date: 20130906
  Receipt Date: 20151019
  Transmission Date: 20160305
  Serious: Yes (Disabling)
  Sender: FDA-Public Use
  Company Number: US-ROCHE-1266832

PATIENT
  Sex: Male

DRUGS (4)
  1. LUCENTIS [Suspect]
     Active Substance: RANIBIZUMAB
     Indication: NEOVASCULAR AGE-RELATED MACULAR DEGENERATION
     Dosage: RIGHT EYE, 0.05CC FORM
     Route: 050
  2. SALINE RINSE [Concomitant]
     Dosage: PRN
     Route: 065
  3. BETADINE [Concomitant]
     Active Substance: POVIDONE-IODINE
     Route: 065
  4. LUCENTIS [Suspect]
     Active Substance: RANIBIZUMAB
     Indication: AGE-RELATED MACULAR DEGENERATION
     Dosage: 3-4MM FROM THE LIMBUS
     Route: 042

REACTIONS (11)
  - Nasopharyngitis [Unknown]
  - Retinal haemorrhage [Unknown]
  - Vision blurred [Unknown]
  - Visual acuity reduced [Unknown]
  - Vitreous detachment [Unknown]
  - Cataract [Unknown]
  - Blindness [Unknown]
  - Metamorphopsia [Unknown]
  - Hypersensitivity [Unknown]
  - Vitreous floaters [Unknown]
  - Choroidal neovascularisation [Unknown]
